FAERS Safety Report 23259158 (Version 3)
Quarter: 2023Q4

REPORT INFORMATION
  Report Type: Report from Study
  Country: US (occurrence: US)
  Receive Date: 20231204
  Receipt Date: 20231220
  Transmission Date: 20240110
  Serious: Yes (Other)
  Sender: FDA-Public Use
  Company Number: US-ALNYLAM PHARMACEUTICALS, INC.-ALN-2023-006346

PATIENT

DRUGS (2)
  1. AMVUTTRA [Suspect]
     Active Substance: VUTRISIRAN
     Indication: Hereditary neuropathic amyloidosis
     Dosage: UNK
     Route: 065
     Dates: start: 20230420
  2. VYNDAMAX [Concomitant]
     Active Substance: TAFAMIDIS
     Indication: Product used for unknown indication
     Dosage: UNK
     Route: 065

REACTIONS (9)
  - Shoulder operation [Unknown]
  - Malaise [Unknown]
  - Drug ineffective [Unknown]
  - Lumbar spinal stenosis [Unknown]
  - Back pain [Unknown]
  - Depression [Unknown]
  - Arthropathy [Unknown]
  - Cardiac disorder [Unknown]
  - Troponin abnormal [Unknown]

NARRATIVE: CASE EVENT DATE: 20230901
